FAERS Safety Report 11969284 (Version 1)
Quarter: 2016Q1

REPORT INFORMATION
  Report Type: Report from Study
  Country: US (occurrence: US)
  Receive Date: 20160128
  Receipt Date: 20160128
  Transmission Date: 20160526
  Serious: Yes (Hospitalization)
  Sender: FDA-Public Use
  Company Number: US-ROCHE-1700095

PATIENT
  Age: 65 Year
  Sex: Female
  Weight: 86.9 kg

DRUGS (8)
  1. BEVACIZUMAB [Suspect]
     Active Substance: BEVACIZUMAB
     Dosage: CYCLES 7-22, 15MG/KG OVER 30-90 MINS ON DAY 1
     Route: 042
  2. PACLITAXEL. [Suspect]
     Active Substance: PACLITAXEL
     Dosage: CYCLE 2-6 (OVER 1 HR ON DAYS 1, 8,15)
     Route: 042
  3. CARBOPLATIN. [Suspect]
     Active Substance: CARBOPLATIN
     Indication: OVARIAN CANCER
     Dosage: CYCLE 1, AUC=6 (OVER 30 MINS ON DAY 1)?LAST DOSE ADMINISTERED PRIOR TO SAE: 22/OCT/2015?TOTAL DOSE A
     Route: 042
     Dates: start: 20151022
  4. CARBOPLATIN. [Suspect]
     Active Substance: CARBOPLATIN
     Dosage: CYCLE 1, AUC=6 (OVER 30 MINS ON DAY 1)
     Route: 042
  5. VELIPARIB [Suspect]
     Active Substance: VELIPARIB
     Dosage: CYCLE 2-6 (ON DAYS 2-5)
     Route: 048
  6. BEVACIZUMAB [Suspect]
     Active Substance: BEVACIZUMAB
     Indication: OVARIAN CANCER
     Dosage: CYCLES 2-6, 15MG/KG OVER 30-90 MINS ON DAY 1?LAST DOSE PRIOR TO SAE: 22/OCT/2015?TOTAL DOSE ADMINIST
     Route: 042
     Dates: start: 20151022
  7. VELIPARIB [Suspect]
     Active Substance: VELIPARIB
     Indication: OVARIAN CANCER
     Dosage: CYCLE 1 ON DAYS 2-5?LAST DOSE ADMINISTERED PRIOR TO SAE: 26/OCT/2015?TOTAL DOSE ADMINISTERED: 2100 M
     Route: 048
     Dates: start: 20151020
  8. PACLITAXEL. [Suspect]
     Active Substance: PACLITAXEL
     Indication: OVARIAN CANCER
     Dosage: CYCLE 1 (OVER 1 HR ON DAYS 1, 8,15)?LAST DOSE ADMINISTERED PRIOR TO SAE: 29/OCT/2015?TOTAL DOSE ADMI
     Route: 042
     Dates: start: 20151022

REACTIONS (2)
  - Cystitis noninfective [Recovering/Resolving]
  - Fatigue [Recovering/Resolving]

NARRATIVE: CASE EVENT DATE: 20151104
